FAERS Safety Report 7553801-5 (Version None)
Quarter: 2011Q2

REPORT INFORMATION
  Report Type: 
  Country: None (occurrence: None)
  Receive Date: 20110617
  Receipt Date: 20110608
  Transmission Date: 20111010
  Serious: Yes (Hospitalization)
  Sender: FDA-Public Use
  Company Number: IT-JNJFOC-20110605794

PATIENT
  Age: 69 Year
  Sex: Female

DRUGS (10)
  1. OMEPRAZOLE [Concomitant]
     Route: 065
  2. IBUPROFEN [Concomitant]
     Route: 065
  3. SALBUTAMOL SULFATE [Concomitant]
     Route: 065
  4. CEFTRIAXONE [Concomitant]
     Route: 065
  5. LEVOFLOXACIN [Suspect]
     Indication: ACINETOBACTER INFECTION
     Route: 048
     Dates: start: 20110410, end: 20110419
  6. ENALAPRIL MALEATE [Concomitant]
     Route: 065
  7. CAPTOPRIL [Concomitant]
     Route: 065
  8. DOXAZOSIN MESYLATE [Concomitant]
     Route: 065
  9. FLUTICASONE PROPIONATE [Concomitant]
     Route: 065
  10. ATARAX [Concomitant]
     Route: 065

REACTIONS (6)
  - ERYTHEMA [None]
  - OVERLAP SYNDROME [None]
  - TOXIC EPIDERMAL NECROLYSIS [None]
  - SKIN EXFOLIATION [None]
  - RASH [None]
  - BLISTER [None]
